FAERS Safety Report 10338176 (Version 1)
Quarter: 2014Q3

REPORT INFORMATION
  Report Type: Spontaneous
  Country: US (occurrence: US)
  Receive Date: 20140724
  Receipt Date: 20140724
  Transmission Date: 20150326
  Serious: Yes (Other)
  Sender: FDA-Public Use
  Company Number: PHEH2014US014452

PATIENT
  Age: 64 Year
  Sex: Female

DRUGS (19)
  1. ZOMETA [Suspect]
     Active Substance: ZOLEDRONIC ACID
     Dosage: UNK UKN, UNK
     Dates: start: 20120821
  2. NEUPOGEN [Concomitant]
     Active Substance: FILGRASTIM
     Dosage: 1 DF, DAILY
  3. ZOMETA [Suspect]
     Active Substance: ZOLEDRONIC ACID
     Indication: METASTASES TO BONE
     Dosage: 4 MG, DAILY OVER 10 MIN IN NS 150
     Route: 042
     Dates: start: 20111011
  4. FASLODEX [Suspect]
     Active Substance: FULVESTRANT
     Dosage: UNK UKN, MONTHLY
     Dates: start: 20111011, end: 20120821
  5. XEMPRA [Suspect]
     Active Substance: OMEPRAZOLE
     Dosage: UNK
     Dates: start: 20120911
  6. AMBIEN [Concomitant]
     Active Substance: ZOLPIDEM TARTRATE
     Dosage: 5 MG, AT BED TIME PRN
     Route: 048
  7. PERCOCET [Concomitant]
     Active Substance: ACETAMINOPHEN\OXYCODONE HYDROCHLORIDE
     Dosage: 2 DF, 4 TO  HOURS PRN
     Route: 048
  8. GABAPENTIN. [Concomitant]
     Active Substance: GABAPENTIN
     Dosage: UNK UKN, UNK
     Route: 048
  9. DEXAMETHASONE SODIUM PHOSPHATE [Concomitant]
     Active Substance: DEXAMETHASONE SODIUM PHOSPHATE
     Dosage: 300 ML/HOUR, DAILY
     Route: 042
  10. LACTULOSE. [Concomitant]
     Active Substance: LACTULOSE
     Dosage: 15 ML, BID PRN
     Route: 048
  11. FAMOTIDINE. [Concomitant]
     Active Substance: FAMOTIDINE
     Dosage: 300 ML/HR, UNK
     Route: 042
  12. GRANISETRON HCL,INJ,3MG 50ML 1BAG [Concomitant]
     Active Substance: GRANISETRON
     Dosage: UNK UKN, UNK
     Route: 042
  13. PALONOSETRON HYDROCHLORIDE [Concomitant]
     Active Substance: PALONOSETRON HYDROCHLORIDE
     Dosage: UNK UKN, UNK
     Route: 042
  14. DIPHENHYDRAMIN HCL [Concomitant]
     Dosage: 200 ML/HOUR, DAILY
     Route: 042
  15. IXABEPILONE [Concomitant]
     Active Substance: IXABEPILONE
     Dosage: UNK UKN, UNK
     Route: 042
  16. XEMPRA [Suspect]
     Active Substance: OMEPRAZOLE
     Dosage: UNK UKN, UNK
     Dates: start: 20120821
  17. XELODA [Suspect]
     Active Substance: CAPECITABINE
     Dosage: 1000 MG, BID
     Route: 048
     Dates: start: 20120821
  18. NEULASTA [Suspect]
     Active Substance: PEGFILGRASTIM
     Dosage: 6 MG, UNK
     Route: 058
     Dates: start: 20120826
  19. ALOXI [Concomitant]
     Active Substance: PALONOSETRON HYDROCHLORIDE
     Dosage: 0.25 MG, OVER 10 MIN DAILY IN NS 50 ML

REACTIONS (10)
  - Osteoarthritis [Unknown]
  - Pulmonary mass [Unknown]
  - Bone lesion [Unknown]
  - Pain in extremity [Recovered/Resolved]
  - Metastases to liver [Unknown]
  - Neutropenia [Unknown]
  - Onychomycosis [Unknown]
  - Pleural effusion [Unknown]
  - Pleural disorder [Unknown]
  - Lymphadenopathy [Unknown]

NARRATIVE: CASE EVENT DATE: 20120128
